FAERS Safety Report 13519850 (Version 2)
Quarter: 2017Q4

REPORT INFORMATION
  Report Type: Report from Study
  Country: US (occurrence: US)
  Receive Date: 20170506
  Receipt Date: 20171010
  Transmission Date: 20180320
  Serious: Yes (Other)
  Sender: FDA-Public Use
  Company Number: US-BRISTOL-MYERS SQUIBB COMPANY-BMS-2017-037279

PATIENT
  Sex: Female
  Weight: 105.2 kg

DRUGS (1)
  1. ABATACEPT [Suspect]
     Active Substance: ABATACEPT
     Indication: RHEUMATOID ARTHRITIS
     Dosage: UNK, Q4WK, 3 INFUSIONS
     Route: 042
     Dates: start: 20170401

REACTIONS (9)
  - Asthenia [Unknown]
  - Fatigue [Unknown]
  - Joint stiffness [Unknown]
  - Drug hypersensitivity [Unknown]
  - Cataract [Unknown]
  - Mouth swelling [Unknown]
  - Dyspnoea [Unknown]
  - Urticaria [Unknown]
  - Diarrhoea [Unknown]
